FAERS Safety Report 6691009-6 (Version None)
Quarter: 2010Q2

REPORT INFORMATION
  Report Type: 
  Country: None (occurrence: None)
  Receive Date: 20100421
  Receipt Date: 20100414
  Transmission Date: 20101027
  Serious: Yes (Hospitalization)
  Sender: FDA-Public Use
  Company Number: AU-MERCK-1001USA03577

PATIENT
  Age: 83 Year
  Sex: Female

DRUGS (5)
  1. FOSAMAX [Suspect]
     Route: 048
     Dates: start: 20050615
  2. LANOXIN [Concomitant]
     Route: 065
  3. LEVOTHYROXINE SODIUM [Concomitant]
     Route: 065
  4. LIPITOR [Concomitant]
     Route: 065
  5. OMEGA-3 MARINE TRIGLYCERIDES [Concomitant]
     Route: 065

REACTIONS (2)
  - ABDOMINAL DISTENSION [None]
  - DEEP VEIN THROMBOSIS [None]
